FAERS Safety Report 16473191 (Version 1)
Quarter: 2019Q2

REPORT INFORMATION
  Report Type: Spontaneous
  Country: US (occurrence: US)
  Receive Date: 20190514
  Receipt Date: 20190514
  Transmission Date: 20190711
  Serious: Yes (Other)
  Sender: FDA-Public Use
  Company Number: None

PATIENT
  Age: 81 Year
  Sex: Female
  Weight: 56.25 kg

DRUGS (5)
  1. FIRDAPSE [Suspect]
     Active Substance: AMIFAMPRIDINE
     Indication: MYASTHENIC SYNDROME
     Dosage: ?          QUANTITY:2 DF DOSAGE FORM;?
     Route: 048
     Dates: start: 20190404
  2. PREDNISONE. [Concomitant]
     Active Substance: PREDNISONE
  3. GARLIQUE [Concomitant]
     Active Substance: GARLIC
  4. VITAMIN B COMPLEX [Concomitant]
     Active Substance: CYANOCOBALAMIN\DEXPANTHENOL\NIACINAMIDE\PYRIDOXINE HYDROCHLORIDE\RIBOFLAVIN 5^-PHOSPHATE SODIUM\THIAMINE HYDROCHLORIDE\VITAMIN B COMPLEX
  5. VITAMIN D3 [Concomitant]
     Active Substance: CHOLECALCIFEROL

REACTIONS (10)
  - Muscular weakness [None]
  - Coordination abnormal [None]
  - Movement disorder [None]
  - Therapeutic product effect decreased [None]
  - Dyspnoea [None]
  - Loss of personal independence in daily activities [None]
  - Asthenia [None]
  - Gait disturbance [None]
  - Therapeutic response shortened [None]
  - Dysphagia [None]

NARRATIVE: CASE EVENT DATE: 20190406
